FAERS Safety Report 18052733 (Version 2)
Quarter: 2020Q3

REPORT INFORMATION
  Report Type: Spontaneous
  Country: US (occurrence: US)
  Receive Date: 20200721
  Receipt Date: 20200730
  Transmission Date: 20201103
  Serious: Yes (Other)
  Sender: FDA-Public Use
  Company Number: US-BAUSCH-BL-2020-020197

PATIENT
  Age: 55 Year
  Sex: Female
  Weight: 56.3 kg

DRUGS (1)
  1. RELISTOR [Suspect]
     Active Substance: METHYLNALTREXONE BROMIDE
     Indication: CONSTIPATION
     Dosage: 12MG/0.6ML (1 SYRINGE EVERY 3 DAYS)
     Route: 058
     Dates: start: 2017, end: 201801

REACTIONS (4)
  - Systemic lupus erythematosus [Not Recovered/Not Resolved]
  - Insurance issue [Unknown]
  - Inability to afford medication [Unknown]
  - Pain [Not Recovered/Not Resolved]
